FAERS Safety Report 11092202 (Version 2)
Quarter: 2015Q2

REPORT INFORMATION
  Report Type: Report from Study
  Country: BR (occurrence: BR)
  Receive Date: 20150506
  Receipt Date: 20150511
  Transmission Date: 20150821
  Serious: No
  Sender: FDA-Public Use
  Company Number: BR-ROCHE-1401258

PATIENT
  Sex: Female
  Weight: 80 kg

DRUGS (3)
  1. PREDNISONE. [Concomitant]
     Active Substance: PREDNISONE
  2. ACTEMRA [Suspect]
     Active Substance: TOCILIZUMAB
     Indication: RHEUMATOID ARTHRITIS
     Dosage: LATEST INFUSION ON 01/APR/2015?SUBSEQUENT INFUSIONS ON 08/MAY/2014, 09/JUN/2014, 01/JUL/2014, 01/AUG
     Route: 042
     Dates: start: 20140407
  3. METHOTREXATE [Concomitant]
     Active Substance: METHOTREXATE

REACTIONS (2)
  - Influenza [Recovering/Resolving]
  - Pain [Not Recovered/Not Resolved]
